FAERS Safety Report 8177168-7 (Version None)
Quarter: 2012Q1

REPORT INFORMATION
  Report Type: 
  Country: None (occurrence: None)
  Receive Date: 20120301
  Receipt Date: 20120224
  Transmission Date: 20120608
  Serious: No
  Sender: FDA-Public Use
  Company Number: US-TEVA-325341USA

PATIENT
  Sex: Female
  Weight: 88.53 kg

DRUGS (1)
  1. PLAN B ONE-STEP [Suspect]
     Indication: POST COITAL CONTRACEPTION
     Dosage: 1.5 MILLIGRAM;
     Route: 048
     Dates: start: 20120223, end: 20120223

REACTIONS (6)
  - BACK PAIN [None]
  - ABDOMINAL PAIN [None]
  - DIZZINESS [None]
  - VULVOVAGINAL PRURITUS [None]
  - FATIGUE [None]
  - NAUSEA [None]
